FAERS Safety Report 12287290 (Version 2)
Quarter: 2016Q2

REPORT INFORMATION
  Report Type: Spontaneous
  Country: US (occurrence: US)
  Receive Date: 20160420
  Receipt Date: 20160530
  Transmission Date: 20160815
  Serious: No
  Sender: FDA-Public Use
  Company Number: US-ASTRAZENECA-2016SE38509

PATIENT
  Sex: Female

DRUGS (1)
  1. RHINOCORT [Suspect]
     Active Substance: BUDESONIDE
     Dosage: ONE TIME
     Route: 045

REACTIONS (1)
  - Diarrhoea [Unknown]

NARRATIVE: CASE EVENT DATE: 20160408
